FAERS Safety Report 4364920-9 (Version None)
Quarter: 2004Q2

REPORT INFORMATION
  Report Type: 
  Country: None (occurrence: None)
  Receive Date: 20040524
  Receipt Date: 20011009
  Transmission Date: 20050107
  Serious: Yes (Congenital Anomaly)
  Sender: FDA-Public Use
  Company Number: PERIO-2001-0367

PATIENT

DRUGS (2)
  1. PERIOSTAT [Suspect]
     Indication: URINARY TRACT INFECTION
     Dosage: 20 MG, BID, PER ORAL
     Route: 048
     Dates: start: 20010930, end: 20011002
  2. PRAVACHOL [Concomitant]

REACTIONS (2)
  - EYE PRURITUS [None]
  - NASAL CONGESTION [None]
